FAERS Safety Report 12686830 (Version 2)
Quarter: 2016Q3

REPORT INFORMATION
  Report Type: Report from Study
  Country: CA (occurrence: CA)
  Receive Date: 20160825
  Receipt Date: 20160920
  Transmission Date: 20161109
  Serious: Yes (Other)
  Sender: FDA-Public Use
  Company Number: CA-ABBVIE-16K-028-1705987-00

PATIENT
  Sex: Male
  Weight: 120.76 kg

DRUGS (2)
  1. OTEZLA [Suspect]
     Active Substance: APREMILAST
     Indication: PRODUCT USED FOR UNKNOWN INDICATION
     Route: 065
  2. HUMIRA [Suspect]
     Active Substance: ADALIMUMAB
     Indication: PSORIATIC ARTHROPATHY
     Route: 058
     Dates: start: 20120917, end: 201406

REACTIONS (10)
  - Mobility decreased [Not Recovered/Not Resolved]
  - Pain [Not Recovered/Not Resolved]
  - Diarrhoea [Not Recovered/Not Resolved]
  - Umbilical hernia [Unknown]
  - Abdominal pain upper [Not Recovered/Not Resolved]
  - Hip fracture [Unknown]
  - Road traffic accident [Unknown]
  - Hip fracture [Unknown]
  - Post procedural infection [Unknown]
  - Fall [Unknown]

NARRATIVE: CASE EVENT DATE: 2014
